FAERS Safety Report 22196588 (Version 4)
Quarter: 2023Q4

REPORT INFORMATION
  Report Type: Spontaneous
  Country: VN (occurrence: VN)
  Receive Date: 20230411
  Receipt Date: 20231006
  Transmission Date: 20240110
  Serious: Yes (Hospitalization, Other)
  Sender: FDA-Public Use
  Company Number: VN-BAYER-2023A045857

PATIENT
  Age: 93 Year

DRUGS (1)
  1. ULTRAVIST [Suspect]
     Active Substance: IOPROMIDE
     Dosage: 100 ML, ONCE
     Route: 042
     Dates: start: 20230321, end: 20230321

REACTIONS (19)
  - Anaphylactic reaction [Unknown]
  - Sepsis [Unknown]
  - Pneumonia [Unknown]
  - Cholecystitis [Unknown]
  - Dyspnoea [Unknown]
  - Back disorder [Unknown]
  - Rash [Unknown]
  - Eye swelling [Unknown]
  - Wheezing [Unknown]
  - Feeling cold [Unknown]
  - Blood pressure increased [Unknown]
  - Oxygen saturation decreased [Unknown]
  - Fatigue [Recovered/Resolved]
  - Pyrexia [Recovered/Resolved]
  - Productive cough [Recovered/Resolved]
  - Abdominal pain [Recovered/Resolved]
  - Sepsis [Recovered/Resolved]
  - Pneumonia [Recovered/Resolved]
  - Cholecystitis [Recovered/Resolved]

NARRATIVE: CASE EVENT DATE: 20230321
